FAERS Safety Report 12656818 (Version 1)
Quarter: 2016Q3

REPORT INFORMATION
  Report Type: Spontaneous
  Country: CN (occurrence: CN)
  Receive Date: 20160816
  Receipt Date: 20160816
  Transmission Date: 20161109
  Serious: Yes (Life-Threatening, Hospitalization, Other)
  Sender: FDA-Public Use
  Company Number: CN-MYLANLABS-2016M1033687

PATIENT

DRUGS (2)
  1. DESMOPRESSIN [Suspect]
     Active Substance: DESMOPRESSIN
     Indication: HAEMORRHAGE PROPHYLAXIS
     Dosage: 16 MICROG IN 500 ML OF NORMAL SALINE AT 150 ML/HOUR ONE TIME PER DAY
     Route: 041
     Dates: start: 20090727
  2. DESMOPRESSIN [Suspect]
     Active Substance: DESMOPRESSIN
     Indication: OFF LABEL USE

REACTIONS (3)
  - Diabetes insipidus [Recovered/Resolved]
  - Hyponatraemia [Recovered/Resolved]
  - Encephalopathy [Recovered/Resolved]

NARRATIVE: CASE EVENT DATE: 20090729
